FAERS Safety Report 20789592 (Version 1)
Quarter: 2022Q2

REPORT INFORMATION
  Report Type: Spontaneous
  Country: US (occurrence: US)
  Receive Date: 20220505
  Receipt Date: 20220505
  Transmission Date: 20220721
  Serious: Yes (Hospitalization)
  Sender: FDA-Public Use
  Company Number: US-MYLANLABS-2022M1032918

PATIENT
  Age: 18 Year
  Sex: Male

DRUGS (3)
  1. MODAFINIL [Suspect]
     Active Substance: MODAFINIL
     Indication: Catatonia
     Dosage: 100 MILLIGRAM, QD
     Route: 065
  2. QUETIAPINE [Suspect]
     Active Substance: QUETIAPINE
     Indication: Catatonia
     Dosage: 75 MILLIGRAM (AT NIGHT)
     Route: 065
  3. AMANTADINE [Concomitant]
     Active Substance: AMANTADINE
     Indication: Catatonia
     Dosage: 200 MILLIGRAM, BID
     Route: 065

REACTIONS (2)
  - Agitation [Recovering/Resolving]
  - Off label use [Unknown]
